FAERS Safety Report 4894760-3 (Version None)
Quarter: 2006Q1

REPORT INFORMATION
  Report Type: 
  Country: None (occurrence: None)
  Receive Date: 20060126
  Receipt Date: 20060126
  Transmission Date: 20060701
  Serious: Yes (Life-Threatening)
  Sender: FDA-Public Use
  Company Number: None

PATIENT
  Sex: Male
  Weight: 80 kg

DRUGS (2)
  1. PLAQUENIL [Suspect]
     Indication: PSORIATIC ARTHROPATHY
     Dosage: 200 MG  DAILY   PO
     Route: 048
     Dates: start: 20050717, end: 20050811
  2. PLAQUENIL [Suspect]
     Indication: RHEUMATOID ARTHRITIS
     Dosage: 200 MG  DAILY   PO
     Route: 048
     Dates: start: 20050717, end: 20050811

REACTIONS (2)
  - EPIDERMOLYSIS [None]
  - STEVENS-JOHNSON SYNDROME [None]
